FAERS Safety Report 12927010 (Version 1)
Quarter: 2016Q4

REPORT INFORMATION
  Report Type: Spontaneous
  Country: MY (occurrence: MY)
  Receive Date: 20161109
  Receipt Date: 20161109
  Transmission Date: 20170207
  Serious: Yes (Death)
  Sender: FDA-Public Use
  Company Number: MY-PFIZER INC-2016516945

PATIENT
  Age: 22 Year
  Sex: Male

DRUGS (5)
  1. STREPTOMYCIN [Suspect]
     Active Substance: STREPTOMYCIN\STREPTOMYCIN SULFATE
     Indication: TUBERCULOSIS
     Dosage: 540 MG, DAILY
     Route: 042
  2. HYDROCORTISONE. [Concomitant]
     Active Substance: HYDROCORTISONE
     Dosage: UNK (ONE CYCLE)
     Route: 042
  3. CIPROFLOXACIN HCL [Suspect]
     Active Substance: CIPROFLOXACIN HYDROCHLORIDE
     Indication: TUBERCULOSIS
     Dosage: 500 MG, 2X/DAY
  4. ETHAMBUTOL [Suspect]
     Active Substance: ETHAMBUTOL HYDROCHLORIDE
     Indication: TUBERCULOSIS
     Dosage: 600 MG, DAILY
  5. PYRIDOXINE [Suspect]
     Active Substance: PYRIDOXINE
     Indication: TUBERCULOSIS
     Dosage: 10 MG, DAILY

REACTIONS (1)
  - Disease progression [Fatal]
